FAERS Safety Report 25017251 (Version 1)
Quarter: 2025Q1

REPORT INFORMATION
  Report Type: Report from Study
  Country: FR (occurrence: FR)
  Receive Date: 20250227
  Receipt Date: 20250227
  Transmission Date: 20250409
  Serious: Yes (Death, Other)
  Sender: ACCORD
  Company Number: FR-Accord-470881

PATIENT

DRUGS (1)
  1. METHOTREXATE [Suspect]
     Active Substance: METHOTREXATE
     Indication: Pemphigoid

REACTIONS (6)
  - Thrombocytopenia [Fatal]
  - Neutropenia [Fatal]
  - Diarrhoea [Fatal]
  - Skin wound [Fatal]
  - General physical health deterioration [Fatal]
  - Off label use [Unknown]
